FAERS Safety Report 9777650 (Version 1)
Quarter: 2013Q4

REPORT INFORMATION
  Report Type: Other
  Country: GB (occurrence: GB)
  Receive Date: 20131223
  Receipt Date: 20131223
  Transmission Date: 20140711
  Serious: Yes (Life-Threatening)
  Sender: FDA-Public Use
  Company Number: GB-GLENMARK GENERICS INC.-2013GMK007846

PATIENT
  Age: 31 Year
  Sex: Male

DRUGS (3)
  1. GABAPENTIN [Suspect]
     Indication: SCIATICA
     Dosage: 700 MG, TID
     Route: 048
     Dates: end: 20131130
  2. METHADONE [Suspect]
     Indication: TOXICITY TO VARIOUS AGENTS
     Dosage: UNK
     Route: 048
  3. MIRTAZAPINE [Suspect]
     Indication: DEPRESSION
     Dosage: 45 MG, UNK
     Route: 048
     Dates: end: 20131130

REACTIONS (3)
  - Intentional overdose [Recovered/Resolved with Sequelae]
  - Sedation [Recovered/Resolved]
  - Loss of consciousness [Recovered/Resolved]
